FAERS Safety Report 10368867 (Version 1)
Quarter: 2014Q3

REPORT INFORMATION
  Report Type: Spontaneous
  Country: US (occurrence: US)
  Receive Date: 20140807
  Receipt Date: 20140807
  Transmission Date: 20150326
  Serious: No
  Sender: FDA-Public Use
  Company Number: US-BAYER-2014-110840

PATIENT
  Age: 59 Year
  Sex: Female
  Weight: 53 kg

DRUGS (7)
  1. BAYER GENUINE ASPIRIN [Suspect]
     Active Substance: ASPIRIN
     Dosage: UNK
     Route: 048
  2. PREMARIN [Concomitant]
     Active Substance: ESTROGENS, CONJUGATED
  3. SYNTHROID [Concomitant]
     Active Substance: LEVOTHYROXINE SODIUM
  4. CENTRUM [MINERALS NOS,VITAMINS NOS] [Concomitant]
  5. CITRACAL CALCIUM + D SLOW RELEASE 1200 [Suspect]
     Active Substance: CALCIUM CITRATE
     Dosage: 2 DF, QD WITH FOOD
     Route: 048
     Dates: start: 2008
  6. ALEVE [Suspect]
     Active Substance: NAPROXEN SODIUM
     Indication: BACK PAIN
     Route: 048
  7. CRESTOR [Concomitant]
     Active Substance: ROSUVASTATIN CALCIUM

REACTIONS (4)
  - Intentional product misuse [Unknown]
  - Incorrect drug administration duration [None]
  - Therapeutic response changed [Unknown]
  - Drug ineffective [Unknown]
